FAERS Safety Report 7434604-9 (Version None)
Quarter: 2011Q2

REPORT INFORMATION
  Report Type: 
  Country: None (occurrence: None)
  Receive Date: 20110421
  Receipt Date: 20110421
  Transmission Date: 20111010
  Serious: Yes (Disabling)
  Sender: FDA-Public Use
  Company Number: None

PATIENT
  Sex: Male

DRUGS (1)
  1. OMNISCAN 20 CC UNK IV [Suspect]
     Indication: EXTRADURAL ABSCESS
     Dosage: 20CC IV
     Route: 042
     Dates: start: 20041015

REACTIONS (8)
  - FATIGUE [None]
  - PAIN IN EXTREMITY [None]
  - BACK PAIN [None]
  - DYSSTASIA [None]
  - ARTHRALGIA [None]
  - PARAESTHESIA [None]
  - HYPOAESTHESIA [None]
  - GAIT DISTURBANCE [None]
